FAERS Safety Report 24174021 (Version 1)
Quarter: 2024Q3

REPORT INFORMATION
  Report Type: Spontaneous
  Country: IT (occurrence: IT)
  Receive Date: 20240805
  Receipt Date: 20240805
  Transmission Date: 20241016
  Serious: Yes (Other)
  Sender: REGENERON
  Company Number: None

PATIENT
  Age: 75 Year
  Sex: Male

DRUGS (6)
  1. EYLEA [Suspect]
     Active Substance: AFLIBERCEPT
     Indication: Neovascular age-related macular degeneration
     Dosage: 1 DF, SOLUTION FOR INJECTION, 40 MG/ML
     Route: 031
     Dates: start: 20220921, end: 20220921
  2. EYLEA [Suspect]
     Active Substance: AFLIBERCEPT
     Dosage: 1 DF, SOLUTION FOR INJECTION, 40 MG/ML
     Route: 031
     Dates: start: 20230210, end: 20230210
  3. EYLEA [Suspect]
     Active Substance: AFLIBERCEPT
     Dosage: 1 DF, SOLUTION FOR INJECTION, 40 MG/ML
     Route: 031
     Dates: start: 20230524, end: 20230524
  4. EYLEA [Suspect]
     Active Substance: AFLIBERCEPT
     Dosage: 1 DF, SOLUTION FOR INJECTION, 40 MG/ML
     Route: 031
     Dates: start: 20231011, end: 20231011
  5. EYLEA [Suspect]
     Active Substance: AFLIBERCEPT
     Dosage: 1 DF, SOLUTION FOR INJECTION, 40 MG/ML
     Route: 031
     Dates: start: 20240304, end: 20240304
  6. OLMESARTAN MEDOXOMIL E IDROCLOROTIAZIDE TEVA [Concomitant]
     Indication: Hypertension
     Dosage: 25 MG
     Route: 048

REACTIONS (2)
  - Subretinal fluid [Not Recovered/Not Resolved]
  - Therapeutic product effect decreased [Not Recovered/Not Resolved]

NARRATIVE: CASE EVENT DATE: 20240620
